FAERS Safety Report 17330582 (Version 2)
Quarter: 2020Q1

REPORT INFORMATION
  Report Type: Spontaneous
  Country: JP (occurrence: JP)
  Receive Date: 20200128
  Receipt Date: 20200204
  Transmission Date: 20200409
  Serious: Yes (Hospitalization)
  Sender: FDA-Public Use
  Company Number: JP-ASTRAZENECA-2020SE13092

PATIENT
  Age: 90 Year
  Sex: Female

DRUGS (1)
  1. TAGRISSO [Suspect]
     Active Substance: OSIMERTINIB
     Indication: NON-SMALL CELL LUNG CANCER
     Dosage: 80 MG ON MONDAY, WEDNESDAY, AND FRIDAY
     Route: 048

REACTIONS (3)
  - Taste disorder [Recovered/Resolved]
  - Product dose omission [Unknown]
  - Diabetes mellitus [Unknown]
